FAERS Safety Report 25945380 (Version 2)
Quarter: 2025Q4

REPORT INFORMATION
  Report Type: Report from Study
  Country: CA (occurrence: CA)
  Receive Date: 20251021
  Receipt Date: 20251110
  Transmission Date: 20260117
  Serious: No
  Sender: ABBVIE
  Company Number: CA-ABBVIE-6507595

PATIENT
  Sex: Male

DRUGS (1)
  1. SKYRIZI [Suspect]
     Active Substance: RISANKIZUMAB-RZAA
     Indication: Psoriasis
     Route: 058

REACTIONS (3)
  - Nausea [Unknown]
  - Hypoaesthesia [Unknown]
  - Psoriasis [Not Recovered/Not Resolved]
